FAERS Safety Report 23860566 (Version 1)
Quarter: 2024Q2

REPORT INFORMATION
  Report Type: Spontaneous
  Country: US (occurrence: US)
  Receive Date: 20240516
  Receipt Date: 20240516
  Transmission Date: 20240716
  Serious: No
  Sender: FDA-Public Use
  Company Number: US-P+L Developments of Newyork Corporation-2157058

PATIENT
  Age: 33 Year
  Sex: Male

DRUGS (1)
  1. DOCOSANOL [Suspect]
     Active Substance: DOCOSANOL
     Indication: Product used for unknown indication
     Route: 061
     Dates: start: 20240416, end: 20240416

REACTIONS (4)
  - Paraesthesia oral [Recovering/Resolving]
  - Hypoaesthesia oral [Recovering/Resolving]
  - Lip swelling [Recovering/Resolving]
  - Swollen tongue [Recovering/Resolving]

NARRATIVE: CASE EVENT DATE: 20240416
